FAERS Safety Report 4946530-5 (Version None)
Quarter: 2006Q1

REPORT INFORMATION
  Report Type: 
  Country: None (occurrence: None)
  Receive Date: 20060201
  Receipt Date: 20051216
  Transmission Date: 20060701
  Serious: No
  Sender: FDA-Public Use
  Company Number: 2005PV005965

PATIENT
  Sex: Female

DRUGS (3)
  1. BYETTA [Suspect]
     Dosage: 5 MCG, BID, SC
     Route: 058
     Dates: start: 20050101, end: 20050101
  2. ACTOS [Concomitant]
  3. METFORMIN [Concomitant]

REACTIONS (1)
  - DRY MOUTH [None]
